FAERS Safety Report 8355730-6 (Version None)
Quarter: 2012Q2

REPORT INFORMATION
  Report Type: 
  Country: None (occurrence: None)
  Receive Date: 20120514
  Receipt Date: 20120509
  Transmission Date: 20120825
  Serious: Yes (Other)
  Sender: FDA-Public Use
  Company Number: US-PFIZER INC-2012113367

PATIENT
  Sex: Female
  Weight: 72.562 kg

DRUGS (5)
  1. CHANTIX [Suspect]
     Dosage: 1 MG, 2X/DAY
     Dates: start: 20120101
  2. LITHIUM CARBONATE [Concomitant]
     Indication: BIPOLAR DISORDER
     Dosage: 200 MG, 2X/DAY
  3. CHANTIX [Suspect]
     Dosage: 0.5 MG, DAILY
     Dates: start: 20120423, end: 20120101
  4. CHANTIX [Suspect]
     Indication: SMOKING CESSATION THERAPY
     Dosage: UNK
  5. TRAZODONE [Concomitant]
     Indication: DEPRESSION
     Dosage: 100 MG, DAILY

REACTIONS (5)
  - HALLUCINATION [None]
  - VOMITING [None]
  - SPEECH DISORDER [None]
  - ABDOMINAL DISCOMFORT [None]
  - ABNORMAL DREAMS [None]
